FAERS Safety Report 12741725 (Version 1)
Quarter: 2016Q3

REPORT INFORMATION
  Report Type: Spontaneous
  Country: US (occurrence: US)
  Receive Date: 20160913
  Receipt Date: 20160913
  Transmission Date: 20161109
  Serious: Yes (Hospitalization)
  Sender: FDA-Public Use
  Company Number: None

PATIENT
  Age: 6 Year
  Sex: Male

DRUGS (2)
  1. PULMOZYME [Suspect]
     Active Substance: DORNASE ALFA
     Indication: CYSTIC FIBROSIS
     Route: 055
     Dates: start: 20150204
  2. SPORANOX [Suspect]
     Active Substance: ITRACONAZOLE
     Indication: CYSTIC FIBROSIS
     Route: 048
     Dates: start: 20150625

REACTIONS (1)
  - Full blood count decreased [None]
